FAERS Safety Report 8544113-1 (Version None)
Quarter: 2012Q3

REPORT INFORMATION
  Report Type: 
  Country: None (occurrence: None)
  Receive Date: 20120719
  Receipt Date: 20120719
  Transmission Date: 20120928
  Serious: Yes (Other)
  Sender: FDA-Public Use
  Company Number: None

PATIENT
  Sex: Female

DRUGS (2)
  1. PEGASYS [Suspect]
     Indication: HEPATITIS C
     Dosage: PEGASYS 180 MCG QW SQ
     Route: 058
     Dates: start: 20120406, end: 20120717
  2. RIBAVIRIN [Suspect]
     Indication: HEPATITIS C
     Dosage: RIBAPAK 1200MG DAILY PO
     Route: 048
     Dates: start: 20120406, end: 20120717

REACTIONS (1)
  - RETINAL DISORDER [None]
